FAERS Safety Report 5594135-8 (Version None)
Quarter: 2008Q1

REPORT INFORMATION
  Report Type: 
  Country: None (occurrence: None)
  Receive Date: 20080115
  Receipt Date: 20080107
  Transmission Date: 20080703
  Serious: Yes (Other)
  Sender: FDA-Public Use
  Company Number: 2008RL000005

PATIENT
  Sex: Male

DRUGS (4)
  1. RYTHMOL SR [Suspect]
     Indication: ATRIAL FLUTTER
     Dosage: 325 MG;BID; 225 MG;BID;
     Dates: start: 20050101, end: 20071101
  2. RYTHMOL SR [Suspect]
     Indication: ATRIAL FLUTTER
     Dosage: 325 MG;BID; 225 MG;BID;
     Dates: start: 20071101
  3. TOPROL-XL [Concomitant]
  4. VITAMINS /90003601/ [Concomitant]

REACTIONS (4)
  - ATRIAL FLUTTER [None]
  - BLOOD PRESSURE INCREASED [None]
  - DYSPNOEA [None]
  - OFF LABEL USE [None]
